FAERS Safety Report 8096838-2 (Version None)
Quarter: 2012Q1

REPORT INFORMATION
  Report Type: 
  Country: None (occurrence: None)
  Receive Date: 20120129
  Receipt Date: 20111202
  Transmission Date: 20120608
  Serious: No
  Sender: FDA-Public Use
  Company Number: US-ABBOTT-11P-163-0880670-00

PATIENT
  Age: 61 Year
  Sex: Female

DRUGS (2)
  1. SYNTHROID [Concomitant]
     Indication: HYPOTHYROIDISM
  2. HUMIRA [Suspect]
     Indication: CROHN'S DISEASE
     Dates: start: 20110826

REACTIONS (4)
  - ARTHRALGIA [None]
  - PAIN [None]
  - GAIT DISTURBANCE [None]
  - URINARY TRACT INFECTION [None]
